FAERS Safety Report 23140581 (Version 1)
Quarter: 2023Q4

REPORT INFORMATION
  Report Type: Spontaneous
  Country: JP (occurrence: JP)
  Receive Date: 20231103
  Receipt Date: 20231103
  Transmission Date: 20240110
  Serious: Yes (Hospitalization, Other)
  Sender: FDA-Public Use
  Company Number: JP-Merck Healthcare KGaA-2023484172

PATIENT
  Age: 3 Decade
  Sex: Male

DRUGS (2)
  1. METFORMIN HYDROCHLORIDE [Suspect]
     Active Substance: METFORMIN HYDROCHLORIDE
     Indication: Product used for unknown indication
  2. IMEGLIMIN HYDROCHLORIDE [Suspect]
     Active Substance: IMEGLIMIN HYDROCHLORIDE
     Indication: Type 2 diabetes mellitus

REACTIONS (11)
  - Cardio-respiratory arrest [Recovered/Resolved]
  - Malaise [Unknown]
  - Dehydration [Recovered/Resolved]
  - General physical health deterioration [Recovered/Resolved]
  - Near drowning [Unknown]
  - Renal impairment [Unknown]
  - Lactic acidosis [Recovered/Resolved]
  - Decreased appetite [Recovered/Resolved]
  - Abdominal pain [Unknown]
  - Diarrhoea [Unknown]
  - Vomiting [Unknown]

NARRATIVE: CASE EVENT DATE: 20230817
